FAERS Safety Report 4807795-3 (Version None)
Quarter: 2005Q4

REPORT INFORMATION
  Report Type: 
  Country: None (occurrence: None)
  Receive Date: 20051021
  Receipt Date: 20010828
  Transmission Date: 20060501
  Serious: No
  Sender: FDA-Public Use
  Company Number: US_010973095

PATIENT
  Age: 66 Year
  Sex: Male
  Weight: 80 kg

DRUGS (4)
  1. ZYPREXA [Suspect]
     Indication: DEMENTIA
  2. ATIVAN [Concomitant]
  3. SEROQUEL [Concomitant]
  4. DEPAKOTE [Concomitant]

REACTIONS (7)
  - ALANINE AMINOTRANSFERASE DECREASED [None]
  - ASPARTATE AMINOTRANSFERASE DECREASED [None]
  - BLOOD ALBUMIN ABNORMAL [None]
  - BLOOD BILIRUBIN INCREASED [None]
  - BLOOD COUNT ABNORMAL [None]
  - LETHARGY [None]
  - METABOLIC DISORDER [None]
